FAERS Safety Report 10068647 (Version 1)
Quarter: 2014Q2

REPORT INFORMATION
  Report Type: Spontaneous
  Country: AU (occurrence: AU)
  Receive Date: 20140409
  Receipt Date: 20140409
  Transmission Date: 20141212
  Serious: Yes (Hospitalization)
  Sender: FDA-Public Use
  Company Number: AU-GLAXOSMITHKLINE-B0983732A

PATIENT
  Age: 28 Year
  Sex: Female

DRUGS (4)
  1. REVOLADE [Suspect]
     Indication: PRODUCT USED FOR UNKNOWN INDICATION
     Route: 065
  2. RITUXIMAB [Concomitant]
  3. ORAL STEROIDS [Concomitant]
     Route: 065
  4. IVIG [Concomitant]

REACTIONS (1)
  - Cerebrovascular accident [Recovered/Resolved]
